FAERS Safety Report 4711475-2 (Version None)
Quarter: 2005Q3

REPORT INFORMATION
  Report Type: 
  Country: None (occurrence: None)
  Receive Date: 20050711
  Receipt Date: 20050627
  Transmission Date: 20060218
  Serious: Yes (Death)
  Sender: FDA-Public Use
  Company Number: 2005SP001590

PATIENT
  Age: 65 Year
  Sex: Female

DRUGS (5)
  1. LUNESTA [Suspect]
     Dosage: 2 MG; ORAL
     Route: 048
     Dates: start: 20050620, end: 20050601
  2. LUNESTA [Suspect]
     Dosage: 1X; ORAL
     Route: 048
     Dates: start: 20050601, end: 20050601
  3. VICODIN [Suspect]
     Dosage: 1X;
     Dates: start: 20050601, end: 20050601
  4. PAXIL [Concomitant]
  5. ANTIHYPERTENSIVES [Concomitant]

REACTIONS (4)
  - COMPLETED SUICIDE [None]
  - CONFUSIONAL STATE [None]
  - FEELING ABNORMAL [None]
  - OVERDOSE [None]
